FAERS Safety Report 12550539 (Version 2)
Quarter: 2016Q3

REPORT INFORMATION
  Report Type: Spontaneous
  Country: FR (occurrence: FR)
  Receive Date: 20160712
  Receipt Date: 20160714
  Transmission Date: 20161109
  Serious: No
  Sender: FDA-Public Use
  Company Number: FR-009507513-1607FRA004289

PATIENT
  Sex: Male
  Weight: 82 kg

DRUGS (9)
  1. LASILIX [Concomitant]
     Active Substance: FUROSEMIDE
  2. LEVOTHYROX [Concomitant]
     Active Substance: LEVOTHYROXINE
  3. TEMERIT [Concomitant]
     Active Substance: NEBIVOLOL
  4. LERCAN [Concomitant]
     Active Substance: LERCANIDIPINE
  5. RIBAVIRIN. [Suspect]
     Active Substance: RIBAVIRIN
     Dosage: UNK
     Route: 048
  6. INTERFERON ALFA-2B [Suspect]
     Active Substance: INTERFERON ALFA-2B
  7. NOVO-NORM [Concomitant]
     Active Substance: REPAGLINIDE
  8. APROVEL [Concomitant]
     Active Substance: IRBESARTAN
  9. KEPPRA [Concomitant]
     Active Substance: LEVETIRACETAM

REACTIONS (1)
  - Therapy non-responder [Unknown]

NARRATIVE: CASE EVENT DATE: 2002
